FAERS Safety Report 23620126 (Version 2)
Quarter: 2024Q1

REPORT INFORMATION
  Report Type: Spontaneous
  Country: CA (occurrence: CA)
  Receive Date: 20240312
  Receipt Date: 20240314
  Transmission Date: 20240410
  Serious: Yes (Death)
  Sender: FDA-Public Use
  Company Number: CA-BAYER-2024A034916

PATIENT
  Sex: Female

DRUGS (1)
  1. EYLEA [Suspect]
     Active Substance: AFLIBERCEPT
     Indication: Neovascular age-related macular degeneration
     Dosage: UNK, SOLUTION FOR INJECTION IN PRE-FILLED SYRINGE, STRENGTH: 40MG/ML
     Dates: start: 20210317, end: 20210317

REACTIONS (1)
  - Death [Fatal]

NARRATIVE: CASE EVENT DATE: 20240226
